FAERS Safety Report 16012012 (Version 1)
Quarter: 2019Q1

REPORT INFORMATION
  Report Type: Spontaneous
  Country: US (occurrence: US)
  Receive Date: 20190226
  Receipt Date: 20190226
  Transmission Date: 20190418
  Serious: Yes (Other)
  Sender: FDA-Public Use
  Company Number: None

PATIENT
  Age: 69 Year
  Sex: Female
  Weight: 53.06 kg

DRUGS (23)
  1. CALCIUM CARBONATE-VITAMIN D [Concomitant]
     Active Substance: CALCIUM CARBONATE\VITAMIN D
  2. LORATADINE. [Concomitant]
     Active Substance: LORATADINE
  3. PROCHLORPERAZINE MALEATE. [Concomitant]
     Active Substance: PROCHLORPERAZINE MALEATE
  4. OMEGA-3 FIST OIL [Concomitant]
  5. ALPHA LIPOIC ACID [Concomitant]
     Active Substance: .ALPHA.-LIPOIC ACID
  6. CAPECITABINE. [Suspect]
     Active Substance: CAPECITABINE
     Indication: PANCREATIC CARCINOMA
     Route: 048
     Dates: start: 20180924
  7. APAP [Concomitant]
     Active Substance: ACETAMINOPHEN
  8. LATANOPROST. [Concomitant]
     Active Substance: LATANOPROST
  9. OXYBUTYNIN CHLORIDE. [Concomitant]
     Active Substance: OXYBUTYNIN CHLORIDE
  10. POLYETHYLENE GLYCOL 3350. [Concomitant]
     Active Substance: POLYETHYLENE GLYCOL 3350
  11. SENOKOT-S [Concomitant]
     Active Substance: DOCUSATE SODIUM\SENNOSIDES
  12. FUROSEMIDE. [Concomitant]
     Active Substance: FUROSEMIDE
  13. POTASSIMIN [Concomitant]
  14. HYDRALAZINE HCL [Concomitant]
     Active Substance: HYDRALAZINE HYDROCHLORIDE
  15. CELEBREX [Concomitant]
     Active Substance: CELECOXIB
  16. GABAPENTIN. [Concomitant]
     Active Substance: GABAPENTIN
  17. NORVASC [Concomitant]
     Active Substance: AMLODIPINE BESYLATE
  18. CAPECITABINE. [Suspect]
     Active Substance: CAPECITABINE
     Indication: HEPATIC CANCER
     Route: 048
     Dates: start: 20180924
  19. ASPIRIN. [Concomitant]
     Active Substance: ASPIRIN
  20. BUMETANIDE. [Concomitant]
     Active Substance: BUMETANIDE
  21. CLONIDINE HCL [Concomitant]
     Active Substance: CLONIDINE HYDROCHLORIDE
  22. FLUOROURACIL. [Concomitant]
     Active Substance: FLUOROURACIL
  23. POTASSIUM CHLORIDE ER [Concomitant]
     Active Substance: POTASSIUM CHLORIDE

REACTIONS (3)
  - Neuropathy peripheral [None]
  - Disease progression [None]
  - Drug ineffective [None]
